FAERS Safety Report 11811172 (Version 1)
Quarter: 2015Q4

REPORT INFORMATION
  Report Type: Spontaneous
  Country: US (occurrence: None)
  Receive Date: 20151207
  Receipt Date: 20151207
  Transmission Date: 20160305
  Serious: Yes (Hospitalization)
  Sender: FDA-Public Use
  Company Number: None

PATIENT
  Age: 61 Year
  Sex: Male
  Weight: 71.2 kg

DRUGS (1)
  1. CYMBALTA [Suspect]
     Active Substance: DULOXETINE HYDROCHLORIDE
     Indication: DEPRESSION
     Route: 048
     Dates: start: 20151015, end: 20151203

REACTIONS (5)
  - Large intestine polyp [None]
  - Constipation [None]
  - Post procedural haemorrhage [None]
  - Oesophageal varices haemorrhage [None]
  - Haemorrhoids [None]

NARRATIVE: CASE EVENT DATE: 20151106
